FAERS Safety Report 5940190-2 (Version None)
Quarter: 2008Q4

REPORT INFORMATION
  Report Type: 
  Country: None (occurrence: None)
  Receive Date: 20081031
  Receipt Date: 20081031
  Transmission Date: 20090506
  Serious: Yes (Hospitalization)
  Sender: FDA-Public Use
  Company Number: None

PATIENT
  Age: 36 Year
  Sex: Male
  Weight: 82 kg

DRUGS (2)
  1. OXCARBAZEPINE [Suspect]
     Indication: MOOD SWINGS
     Dosage: 600 MG TID PO
     Route: 048
     Dates: start: 20080923, end: 20080925
  2. OXCARBAZEPINE [Suspect]
     Indication: OBSESSIVE-COMPULSIVE DISORDER
     Dosage: 600 MG TID PO
     Route: 048
     Dates: start: 20080923, end: 20080925

REACTIONS (5)
  - COGNITIVE DISORDER [None]
  - CONFUSIONAL STATE [None]
  - DIZZINESS [None]
  - FEELING ABNORMAL [None]
  - HYPONATRAEMIA [None]
